FAERS Safety Report 5596624-9 (Version None)
Quarter: 2008Q1

REPORT INFORMATION
  Report Type: 
  Country: None (occurrence: None)
  Receive Date: 20080118
  Receipt Date: 20080109
  Transmission Date: 20080703
  Serious: Yes (Death)
  Sender: FDA-Public Use
  Company Number: US-PFIZER INC-2008002641

PATIENT
  Age: 56 Year
  Sex: Female

DRUGS (4)
  1. ALPRAZOLAM [Suspect]
     Route: 048
  2. ALL OTHER NON-THERAPEUTIC PRODUCTS [Suspect]
     Route: 048
  3. HYDROCODONE BITARTRATE + ACETAMINOPHEN [Suspect]
     Route: 048
  4. BENZODIAZEPINE DERIVATIVES [Suspect]
     Route: 048

REACTIONS (1)
  - COMPLETED SUICIDE [None]
